FAERS Safety Report 8461080-X (Version None)
Quarter: 2012Q2

REPORT INFORMATION
  Report Type: 
  Country: None (occurrence: None)
  Receive Date: 20120625
  Receipt Date: 20120611
  Transmission Date: 20120825
  Serious: No
  Sender: FDA-Public Use
  Company Number: US-BIOGENIDEC-2012BI021009

PATIENT
  Age: 58 Year
  Sex: Female

DRUGS (4)
  1. AVONEX [Suspect]
     Route: 030
     Dates: start: 20061102
  2. AVONEX [Suspect]
     Route: 030
     Dates: start: 20120609
  3. AVONEX [Suspect]
     Indication: MULTIPLE SCLEROSIS
     Route: 030
     Dates: start: 19970617, end: 20060731
  4. AVONEX [Suspect]
     Route: 030
     Dates: start: 20110312, end: 20120401

REACTIONS (2)
  - UNDERDOSE [None]
  - INJECTION SITE PAIN [None]
